FAERS Safety Report 7792380-4 (Version None)
Quarter: 2011Q4

REPORT INFORMATION
  Report Type: 
  Country: None (occurrence: None)
  Receive Date: 20111003
  Receipt Date: 20110929
  Transmission Date: 20120403
  Serious: Yes (Death, Other)
  Sender: FDA-Public Use
  Company Number: JP-B.I. PHARMACEUTICALS,INC./RIDGEFIELD-2011-BP-23056NB

PATIENT
  Age: 75 Year
  Sex: Female
  Weight: 73.2 kg

DRUGS (5)
  1. ATELEC [Concomitant]
     Route: 065
  2. MICARDIS [Concomitant]
     Route: 065
  3. PRADAXA [Suspect]
     Indication: ATRIAL FIBRILLATION
     Dosage: 220 MG
     Route: 048
     Dates: start: 20110412, end: 20110430
  4. SYMBICORT [Concomitant]
     Route: 065
  5. DILTIAZEM HCL [Concomitant]
     Route: 065

REACTIONS (4)
  - DISSEMINATED INTRAVASCULAR COAGULATION [None]
  - ACTIVATED PARTIAL THROMBOPLASTIN TIME PROLONGED [None]
  - ILEUS [None]
  - METABOLIC ACIDOSIS [None]
